FAERS Safety Report 18235859 (Version 1)
Quarter: 2020Q3

REPORT INFORMATION
  Report Type: Spontaneous
  Country: US (occurrence: US)
  Receive Date: 20200905
  Receipt Date: 20200905
  Transmission Date: 20201103
  Serious: No
  Sender: FDA-Public Use
  Company Number: US-UNITED THERAPEUTICS-UNT-2020-013282

PATIENT
  Sex: Female

DRUGS (2)
  1. REMODULIN [Suspect]
     Active Substance: TREPROSTINIL
     Indication: PULMONARY ARTERIAL HYPERTENSION
     Dosage: UNK UNK, CONTINUING
     Route: 058
     Dates: start: 20200513
  2. REMODULIN [Suspect]
     Active Substance: TREPROSTINIL
     Dosage: 0.0475 ?G/KG, CONTINUING
     Route: 058
     Dates: start: 2020

REACTIONS (9)
  - Eye swelling [Unknown]
  - Infusion site infection [Recovered/Resolved]
  - Device malfunction [Unknown]
  - Skin burning sensation [Not Recovered/Not Resolved]
  - Headache [Unknown]
  - Abdominal pain upper [Unknown]
  - Swelling [Recovering/Resolving]
  - Illness [Unknown]
  - Weight increased [Recovering/Resolving]

NARRATIVE: CASE EVENT DATE: 2020
